FAERS Safety Report 16653074 (Version 1)
Quarter: 2019Q3

REPORT INFORMATION
  Report Type: Spontaneous
  Country: TW (occurrence: TW)
  Receive Date: 20190731
  Receipt Date: 20190731
  Transmission Date: 20191004
  Serious: Yes (Other)
  Sender: FDA-Public Use
  Company Number: TW-ASTRAZENECA-2019SF06255

PATIENT
  Age: 47 Year
  Sex: Male

DRUGS (7)
  1. CISPLATIN. [Concomitant]
     Active Substance: CISPLATIN
     Indication: LUNG SQUAMOUS CELL CARCINOMA STAGE IV
  2. GEMCITABINE. [Concomitant]
     Active Substance: GEMCITABINE
     Indication: LUNG SQUAMOUS CELL CARCINOMA STAGE IV
  3. OSIMERTINIB MESILATE [Suspect]
     Active Substance: OSIMERTINIB
     Indication: LUNG SQUAMOUS CELL CARCINOMA STAGE IV
     Route: 048
  4. ERLOTINIB [Suspect]
     Active Substance: ERLOTINIB
     Indication: LUNG SQUAMOUS CELL CARCINOMA STAGE IV
     Route: 065
     Dates: start: 2013
  5. OSIMERTINIB MESILATE [Suspect]
     Active Substance: OSIMERTINIB
     Indication: LUNG SQUAMOUS CELL CARCINOMA STAGE IV
     Route: 048
     Dates: start: 2017
  6. PACLITAXEL. [Concomitant]
     Active Substance: PACLITAXEL
     Indication: LUNG SQUAMOUS CELL CARCINOMA STAGE IV
  7. AFATINIB [Suspect]
     Active Substance: AFATINIB
     Indication: LUNG SQUAMOUS CELL CARCINOMA STAGE IV
     Route: 065
     Dates: start: 2015

REACTIONS (3)
  - Gene mutation [Unknown]
  - Malignant neoplasm progression [Unknown]
  - Drug resistance [Unknown]

NARRATIVE: CASE EVENT DATE: 2016
